FAERS Safety Report 12847650 (Version 3)
Quarter: 2016Q4

REPORT INFORMATION
  Report Type: Spontaneous
  Country: US (occurrence: US)
  Receive Date: 20161014
  Receipt Date: 20161107
  Transmission Date: 20170207
  Serious: No
  Sender: FDA-Public Use
  Company Number: US-PFIZER INC-2016480660

PATIENT
  Sex: Male

DRUGS (1)
  1. DEPO-TESTOSTERONE [Suspect]
     Active Substance: TESTOSTERONE CYPIONATE
     Indication: ERECTILE DYSFUNCTION
     Dosage: UNK MG/ML, UNK
     Route: 030

REACTIONS (3)
  - Product use issue [Unknown]
  - Liquid product physical issue [Unknown]
  - Injection site pain [Unknown]
